FAERS Safety Report 17618877 (Version 1)
Quarter: 2020Q2

REPORT INFORMATION
  Report Type: Spontaneous
  Country: US (occurrence: US)
  Receive Date: 20200402
  Receipt Date: 20200402
  Transmission Date: 20200713
  Serious: No
  Sender: FDA-Public Use
  Company Number: US-009507513-2004USA000255

PATIENT
  Sex: Male

DRUGS (2)
  1. YTTRIUM-90 [Suspect]
     Active Substance: YTTRIUM CHLORIDE Y-90
     Route: 036
  2. KEYTRUDA [Suspect]
     Active Substance: PEMBROLIZUMAB
     Dosage: UNK

REACTIONS (6)
  - Dyspnoea [Unknown]
  - Stomatitis [Unknown]
  - Bowel movement irregularity [Unknown]
  - Peripheral swelling [Unknown]
  - Abdominal pain [Unknown]
  - Diarrhoea [Unknown]
